FAERS Safety Report 7267988-5 (Version None)
Quarter: 2011Q1

REPORT INFORMATION
  Report Type: 
  Country: None (occurrence: None)
  Receive Date: 20110201
  Receipt Date: 20110124
  Transmission Date: 20110831
  Serious: Yes (Other)
  Sender: FDA-Public Use
  Company Number: ES-BRISTOL-MYERS SQUIBB COMPANY-15505142

PATIENT
  Age: 44 Year
  Sex: Male

DRUGS (3)
  1. DIDANOSINE [Suspect]
     Indication: HIV INFECTION
     Route: 065
  2. NELFINAVIR [Suspect]
     Indication: HIV INFECTION
     Route: 065
  3. STAVUDINE [Suspect]
     Indication: HIV INFECTION
     Route: 065

REACTIONS (4)
  - MITOCHONDRIAL TOXICITY [None]
  - EYELID PTOSIS [None]
  - EXTRAOCULAR MUSCLE PARESIS [None]
  - FACIAL WASTING [None]
